FAERS Safety Report 17007770 (Version 1)
Quarter: 2019Q4

REPORT INFORMATION
  Report Type: Spontaneous
  Country: US (occurrence: US)
  Receive Date: 20191108
  Receipt Date: 20191108
  Transmission Date: 20200122
  Serious: No
  Sender: FDA-Public Use
  Company Number: US-TEVA-2019-US-1133962

PATIENT
  Sex: Female
  Weight: 59.87 kg

DRUGS (1)
  1. ZOLPIDEM [Suspect]
     Active Substance: ZOLPIDEM TARTRATE
     Indication: SLEEP DISORDER
     Dosage: 5MG 0.5 TABLET BY MOUTH AS NEEDED
     Route: 048

REACTIONS (1)
  - Insomnia [Unknown]
